FAERS Safety Report 9781190 (Version 1)
Quarter: 2013Q4

REPORT INFORMATION
  Report Type: Spontaneous
  Country: US (occurrence: None)
  Receive Date: 20131223
  Receipt Date: 20131223
  Transmission Date: 20140711
  Serious: Yes (Disabling)
  Sender: FDA-Public Use
  Company Number: None

PATIENT
  Age: 3 Year
  Sex: Female

DRUGS (1)
  1. MIRALAX [Suspect]
     Indication: CONSTIPATION
     Dosage: 1 CAPFUL, TWICE DAILY, TAKEN BY MOUTH
     Dates: start: 20131115, end: 20131209

REACTIONS (5)
  - Screaming [None]
  - Crying [None]
  - Insomnia [None]
  - Abnormal behaviour [None]
  - Impulse-control disorder [None]
